FAERS Safety Report 23798525 (Version 2)
Quarter: 2024Q3

REPORT INFORMATION
  Report Type: Spontaneous
  Country: US (occurrence: US)
  Receive Date: 20240430
  Receipt Date: 20240716
  Transmission Date: 20241017
  Serious: No
  Sender: PFIZER
  Company Number: US-PFIZER INC-202400093629

PATIENT
  Age: 10 Year
  Sex: Male

DRUGS (1)
  1. GENOTROPIN [Suspect]
     Active Substance: SOMATROPIN
     Indication: Growth hormone deficiency
     Dosage: 0.8 MG, DAILY

REACTIONS (5)
  - Poor quality device used [Unknown]
  - Device breakage [Unknown]
  - Product odour abnormal [Unknown]
  - Device use error [Unknown]
  - Product dose omission issue [Unknown]
